FAERS Safety Report 24233354 (Version 6)
Quarter: 2025Q3

REPORT INFORMATION
  Report Type: Spontaneous
  Country: US (occurrence: US)
  Receive Date: 20240821
  Receipt Date: 20250714
  Transmission Date: 20251020
  Serious: No
  Sender: SANOFI AVENTIS
  Company Number: US-SA-SAC20240817000090

PATIENT
  Age: 9 Year
  Sex: Male

DRUGS (11)
  1. DUPIXENT [Suspect]
     Active Substance: DUPILUMAB
     Indication: Eosinophilic oesophagitis
     Dosage: 300 MG, QW
     Route: 058
     Dates: start: 20240430
  2. DUPIXENT [Suspect]
     Active Substance: DUPILUMAB
     Indication: Dermatitis atopic
  3. ALBUTEROL SULFATE [Concomitant]
     Active Substance: ALBUTEROL SULFATE
  4. AMOXICILLIN [Concomitant]
     Active Substance: AMOXICILLIN
  5. BUDESONIDE [Concomitant]
     Active Substance: BUDESONIDE
  6. CLOBETASOL [Concomitant]
     Active Substance: CLOBETASOL
  7. MOMETASONE [Concomitant]
     Active Substance: MOMETASONE
  8. OMEPRAZOLE [Concomitant]
     Active Substance: OMEPRAZOLE
  9. SINGULAIR [Concomitant]
     Active Substance: MONTELUKAST SODIUM
  10. SPIRIVA [Concomitant]
     Active Substance: TIOTROPIUM BROMIDE MONOHYDRATE
  11. TETRABENAZINE [Concomitant]
     Active Substance: TETRABENAZINE

REACTIONS (6)
  - Impaired quality of life [Not Recovered/Not Resolved]
  - Sleep disorder due to a general medical condition [Not Recovered/Not Resolved]
  - Pain [Not Recovered/Not Resolved]
  - Asthma [Not Recovered/Not Resolved]
  - Drug ineffective [Unknown]
  - Incorrect product administration duration [Unknown]

NARRATIVE: CASE EVENT DATE: 20240101
